FAERS Safety Report 6419376-9 (Version None)
Quarter: 2009Q4

REPORT INFORMATION
  Report Type: 
  Country: None (occurrence: None)
  Receive Date: 20091029
  Receipt Date: 20091027
  Transmission Date: 20100525
  Serious: Yes (Other)
  Sender: FDA-Public Use
  Company Number: CHPA2009US21039

PATIENT
  Sex: Female
  Weight: 88.435 kg

DRUGS (1)
  1. EXCEDRIN (MIGRAINE) [Suspect]
     Indication: MIGRAINE
     Dosage: 1 DF, ONCE/SINGLE
     Route: 048
     Dates: start: 20091026, end: 20091026

REACTIONS (2)
  - SKIN LACERATION [None]
  - WOUND HAEMORRHAGE [None]
